FAERS Safety Report 18528899 (Version 5)
Quarter: 2021Q2

REPORT INFORMATION
  Report Type: Spontaneous
  Country: US (occurrence: US)
  Receive Date: 20201120
  Receipt Date: 20210406
  Transmission Date: 20210717
  Serious: Yes (Other)
  Sender: FDA-Public Use
  Company Number: US-PFIZER INC-2020457774

PATIENT
  Age: 64 Year
  Sex: Female

DRUGS (1)
  1. IBRANCE [Suspect]
     Active Substance: PALBOCICLIB
     Indication: NEOPLASM MALIGNANT
     Dosage: UNK

REACTIONS (6)
  - Cancer pain [Recovering/Resolving]
  - Fatigue [Unknown]
  - Wound [Recovering/Resolving]
  - Arthralgia [Recovering/Resolving]
  - Impaired healing [Recovering/Resolving]
  - Skin abrasion [Recovering/Resolving]
